FAERS Safety Report 17238533 (Version 1)
Quarter: 2019Q4

REPORT INFORMATION
  Report Type: Spontaneous
  Country: US (occurrence: US)
  Receive Date: 20191211
  Receipt Date: 20191211
  Transmission Date: 20200122
  Serious: Yes (Hospitalization)
  Sender: FDA-Public Use
  Company Number: None

PATIENT
  Age: 74 Year
  Sex: Male

DRUGS (11)
  1. LEVOTHYROXIN [Concomitant]
     Active Substance: LEVOTHYROXINE
  2. PREDNISONE. [Concomitant]
     Active Substance: PREDNISONE
  3. AMLODIPINE [Concomitant]
     Active Substance: AMLODIPINE BESYLATE
  4. LOSARTAN. [Concomitant]
     Active Substance: LOSARTAN
  5. CITALOPRAM [Concomitant]
     Active Substance: CITALOPRAM HYDROBROMIDE
  6. GABAPENTIN. [Concomitant]
     Active Substance: GABAPENTIN
  7. LIDOCAINE. [Concomitant]
     Active Substance: LIDOCAINE
  8. BICALUTAMIDE. [Concomitant]
     Active Substance: BICALUTAMIDE
  9. ZYTIGA [Suspect]
     Active Substance: ABIRATERONE ACETATE
     Indication: PROSTATE CANCER
     Route: 048
     Dates: start: 20190918
  10. XCYCLOBENZAPR [Concomitant]
  11. OMEPRAZOLE. [Concomitant]
     Active Substance: OMEPRAZOLE

REACTIONS (4)
  - Hypertension [None]
  - Nausea [None]
  - Hot flush [None]
  - Kidney infection [None]
